FAERS Safety Report 8224890-X (Version None)
Quarter: 2012Q1

REPORT INFORMATION
  Report Type: 
  Country: None (occurrence: None)
  Receive Date: 20120321
  Receipt Date: 20120309
  Transmission Date: 20120608
  Serious: Yes (Death)
  Sender: FDA-Public Use
  Company Number: GB-ROCHE-1047182

PATIENT
  Age: 45 Year
  Sex: Female
  Weight: 90 kg

DRUGS (7)
  1. METOCLOPRAMIDE [Concomitant]
  2. DOCETAXEL [Concomitant]
  3. BENZYDAMINE HYDROCHLORIDE [Concomitant]
  4. DEXAMETHASONE [Concomitant]
  5. PEGFILGRASTIM [Concomitant]
  6. FLUCONAZOLE [Concomitant]
  7. HERCEPTIN [Suspect]
     Indication: BREAST CANCER
     Route: 042
     Dates: start: 20100806, end: 20101210

REACTIONS (2)
  - CARDIAC FAILURE ACUTE [None]
  - DISEASE PROGRESSION [None]
